FAERS Safety Report 5904545-4 (Version None)
Quarter: 2008Q3

REPORT INFORMATION
  Report Type: 
  Country: None (occurrence: None)
  Receive Date: 20080930
  Receipt Date: 20080930
  Transmission Date: 20090109
  Serious: Yes (Hospitalization)
  Sender: FDA-Public Use
  Company Number: None

PATIENT
  Age: 76 Year
  Sex: Male

DRUGS (2)
  1. INSULIN [Suspect]
     Indication: DIABETES MELLITUS
     Dosage: BID SQ
     Route: 058
     Dates: start: 20080219, end: 20080911
  2. GLYBURIDE [Suspect]
     Indication: DIABETES MELLITUS
     Dosage: 10 MG TID PO
     Route: 048
     Dates: start: 20070312, end: 20080911

REACTIONS (2)
  - FALL [None]
  - HYPOGLYCAEMIA [None]
